FAERS Safety Report 25117096 (Version 1)
Quarter: 2025Q1

REPORT INFORMATION
  Report Type: Spontaneous
  Country: US (occurrence: US)
  Receive Date: 20250325
  Receipt Date: 20250325
  Transmission Date: 20250409
  Serious: Yes (Other)
  Sender: AUROBINDO
  Company Number: US-AUROBINDO-AUR-APL-2025-015476

PATIENT
  Age: 38 Year
  Sex: Male

DRUGS (8)
  1. APREMILAST [Suspect]
     Active Substance: APREMILAST
     Indication: Behcet^s syndrome
     Dosage: 30 MILLIGRAM, TWO TIMES A DAY
     Route: 065
  2. MYCOPHENOLIC ACID [Suspect]
     Active Substance: MYCOPHENOLIC ACID
     Indication: Behcet^s syndrome
     Route: 065
  3. UPADACITINIB [Suspect]
     Active Substance: UPADACITINIB
     Indication: Behcet^s syndrome
     Route: 065
  4. RITUXIMAB [Suspect]
     Active Substance: RITUXIMAB
     Indication: Behcet^s syndrome
     Route: 065
  5. ADALIMUMAB [Suspect]
     Active Substance: ADALIMUMAB
     Indication: Behcet^s syndrome
     Dosage: 40 MILLIGRAM, EVERY WEEK
     Route: 065
  6. COLCHICINE [Concomitant]
     Active Substance: COLCHICINE
     Indication: Product used for unknown indication
     Route: 065
  7. SPESOLIMAB [Concomitant]
     Active Substance: SPESOLIMAB
     Indication: Product used for unknown indication
     Route: 065
  8. CANAKINUMAB [Concomitant]
     Active Substance: CANAKINUMAB
     Indication: Product used for unknown indication
     Route: 065

REACTIONS (2)
  - Drug ineffective [Unknown]
  - Off label use [Unknown]
